FAERS Safety Report 11309172 (Version 2)
Quarter: 2015Q3

REPORT INFORMATION
  Report Type: Report from Study
  Country: JP (occurrence: JP)
  Receive Date: 20150724
  Receipt Date: 20150818
  Transmission Date: 20151125
  Serious: Yes (Hospitalization, Other)
  Sender: FDA-Public Use
  Company Number: JP-PFIZER INC-2014322222

PATIENT
  Age: 83 Year
  Sex: Male
  Weight: 46 kg

DRUGS (7)
  1. LASIX [Concomitant]
     Active Substance: FUROSEMIDE
     Indication: CARDIAC FAILURE
     Dosage: 20 MG, DAILY
     Route: 042
     Dates: start: 20110309, end: 20110322
  2. BFLUID [Concomitant]
     Active Substance: AMINO ACIDS\DEXTROSE\ELECTROLYTES NOS\VITAMINS
     Dosage: 500 ML, DAILY
     Route: 041
     Dates: start: 20110309
  3. HANP [Concomitant]
     Active Substance: CARPERITIDE
     Indication: CARDIAC FAILURE
     Dosage: 3000 MG, DAILY
     Route: 041
  4. VITAMEDIN [Concomitant]
     Active Substance: CYANOCOBALAMIN\PYRIDOXINE HYDROCHLORIDE\THIAMINE
     Dosage: 1 DF, DAILY
     Route: 041
     Dates: start: 20110309
  5. VITAMIN C [Concomitant]
     Active Substance: ASCORBIC ACID
     Dosage: 500 MG, DAILY
     Route: 041
     Dates: start: 20110309
  6. ZOSYN [Suspect]
     Active Substance: PIPERACILLIN SODIUM\TAZOBACTAM SODIUM
     Indication: PNEUMONIA ASPIRATION
     Dosage: 4.5 G, 3X/DAY
     Route: 041
     Dates: start: 20110311, end: 20110318
  7. SOLITAX-H [Concomitant]
     Dosage: 500 ML, DAILY
     Route: 041

REACTIONS (3)
  - Renal disorder [Recovered/Resolved]
  - Cerebral infarction [Not Recovered/Not Resolved]
  - Renal impairment [Unknown]

NARRATIVE: CASE EVENT DATE: 20110315
